FAERS Safety Report 12954795 (Version 1)
Quarter: 2016Q4

REPORT INFORMATION
  Report Type: Spontaneous
  Country: US (occurrence: US)
  Receive Date: 20161117
  Receipt Date: 20161117
  Transmission Date: 20170207
  Serious: Yes (Disabling)
  Sender: FDA-Public Use
  Company Number: None

PATIENT
  Age: 45 Year
  Sex: Female
  Weight: 108 kg

DRUGS (2)
  1. LEVOFLOXACIN 500MG PO [Suspect]
     Active Substance: LEVOFLOXACIN
     Indication: CELLULITIS
  2. ANASTRASOLE [Concomitant]

REACTIONS (5)
  - Pain [None]
  - Injury [None]
  - Depression suicidal [None]
  - Tendonitis [None]
  - Drug monitoring procedure not performed [None]

NARRATIVE: CASE EVENT DATE: 20160901
